FAERS Safety Report 10977694 (Version 1)
Quarter: 2015Q1

REPORT INFORMATION
  Report Type: Spontaneous
  Country: US (occurrence: None)
  Receive Date: 20150330
  Receipt Date: 20150330
  Transmission Date: 20150721
  Serious: Yes (Other)
  Sender: FDA-Public Use
  Company Number: FK201501467

PATIENT
  Age: 04 Year
  Sex: Female

DRUGS (13)
  1. DAUNORUBICIN (DAUNORUBICIN) [Suspect]
     Active Substance: DAUNORUBICIN
     Dosage: FIVE CYCLE
  2. L-ASPARAGINASE (L-ASPARAGINASE) (L-ASPARAGINASE) [Suspect]
     Active Substance: ASPARAGINASE
     Dosage: FIVE CYCLE
  3. CARVEDILOL. [Concomitant]
     Active Substance: CARVEDILOL
  4. FUROSEMIDE. [Concomitant]
     Active Substance: FUROSEMIDE
  5. TACROLIMUS. [Concomitant]
     Active Substance: TACROLIMUS
  6. ETOPOSIDE (MANUFACTURER UNKNOWN) (ETOPOSIDE) (ETOPOSIDE) [Suspect]
     Active Substance: ETOPOSIDE
     Indication: ACUTE MYELOID LEUKAEMIA
     Dosage: FIVE CYCLE
  7. SPIRONOLACTONE. [Concomitant]
     Active Substance: SPIRONOLACTONE
  8. MYCOPHENOLATE MOFETIL. [Concomitant]
     Active Substance: MYCOPHENOLATE MOFETIL
  9. RAPAMYCIN (SIROLIMUS) [Concomitant]
  10. MITOXANTRONE [Suspect]
     Active Substance: MITOXANTRONE HYDROCHLORIDE
     Indication: ACUTE MYELOID LEUKAEMIA
     Dosage: FIVE CYCLE
  11. CYTARABINE (MANUFACTURER UNKNOWN) (CYTARABINE) (CYTARABINE) [Suspect]
     Active Substance: CYTARABINE
     Indication: ACUTE MYELOID LEUKAEMIA
     Dosage: FIVE CYCLE
  12. ENALAPRIL [Concomitant]
     Active Substance: ENALAPRIL
  13. DASATINIB [Concomitant]
     Active Substance: DASATINIB

REACTIONS (2)
  - Congestive cardiomyopathy [None]
  - Chronic myeloid leukaemia [None]
